FAERS Safety Report 6104853-0 (Version None)
Quarter: 2009Q1

REPORT INFORMATION
  Report Type: 
  Country: None (occurrence: None)
  Receive Date: 20090306
  Receipt Date: 20090225
  Transmission Date: 20090719
  Serious: Yes (Other)
  Sender: FDA-Public Use
  Company Number: JP-JNJFOC-20080301708

PATIENT
  Age: 51 Year
  Sex: Male

DRUGS (2)
  1. RISPERDAL [Suspect]
     Indication: INSOMNIA
     Route: 048
  2. RISPERDAL [Suspect]
     Route: 048

REACTIONS (5)
  - DECREASED APPETITE [None]
  - DEPRESSED LEVEL OF CONSCIOUSNESS [None]
  - INAPPROPRIATE ANTIDIURETIC HORMONE SECRETION [None]
  - OFF LABEL USE [None]
  - SPEECH DISORDER [None]
